FAERS Safety Report 8853273 (Version 1)
Quarter: 2012Q4

REPORT INFORMATION
  Report Type: 
  Country: US (occurrence: US)
  Receive Date: 20121022
  Receipt Date: 20121022
  Transmission Date: 20130627
  Serious: Yes (Other)
  Sender: FDA-Public Use
  Company Number: US-ROCHE-1130828

PATIENT
  Sex: Female

DRUGS (6)
  1. RITUXAN [Suspect]
     Indication: THROMBOCYTOPENIA
     Route: 065
     Dates: start: 20010711
  2. RITUXAN [Suspect]
     Indication: OFF LABEL USE
  3. CYTOXAN [Concomitant]
  4. PREDNISONE [Concomitant]
     Route: 048
  5. PREDNISONE [Concomitant]
  6. VINCRISTINE [Concomitant]
     Route: 042

REACTIONS (8)
  - Idiopathic thrombocytopenic purpura [Unknown]
  - Melaena [Unknown]
  - Oral pain [Unknown]
  - Oral mucosal blistering [Unknown]
  - No therapeutic response [Unknown]
  - Tongue blistering [Unknown]
  - Pain [Unknown]
  - Petechiae [Unknown]
